FAERS Safety Report 18990098 (Version 2)
Quarter: 2021Q2

REPORT INFORMATION
  Report Type: Spontaneous
  Country: US (occurrence: US)
  Receive Date: 20210310
  Receipt Date: 20210617
  Transmission Date: 20210717
  Serious: No
  Sender: FDA-Public Use
  Company Number: US-BEH-2021129143

PATIENT
  Sex: Male

DRUGS (3)
  1. PRIVIGEN [Suspect]
     Active Substance: HUMAN IMMUNOGLOBULIN G
     Indication: IMMUNODEFICIENCY COMMON VARIABLE
     Dosage: 55 GRAM, QMT
     Route: 042
     Dates: start: 20191219
  2. PRIVIGEN [Suspect]
     Active Substance: HUMAN IMMUNOGLOBULIN G
     Dosage: 50 GRAM, Q3W
     Route: 042
     Dates: start: 20191219
  3. PRIVIGEN [Suspect]
     Active Substance: HUMAN IMMUNOGLOBULIN G
     Dosage: 55 GRAM, Q3W
     Route: 042
     Dates: start: 20191219

REACTIONS (5)
  - Cognitive disorder [Unknown]
  - Decreased appetite [Unknown]
  - Incorrect drug administration rate [Unknown]
  - Headache [Unknown]
  - Nervous system disorder [Unknown]
